FAERS Safety Report 11833548 (Version 2)
Quarter: 2016Q1

REPORT INFORMATION
  Report Type: Spontaneous
  Country: DE (occurrence: DE)
  Receive Date: 20151214
  Receipt Date: 20160210
  Transmission Date: 20160525
  Serious: Yes (Hospitalization, Other)
  Sender: FDA-Public Use
  Company Number: DE-SHIRE-DE201516087

PATIENT
  Age: 9 Year
  Sex: Male
  Weight: 25 kg

DRUGS (7)
  1. ATTENTIN [Concomitant]
     Indication: ATTENTION DEFICIT/HYPERACTIVITY DISORDER
     Dosage: 0.5 MG, ONE DOSE
     Route: 065
     Dates: start: 20151112
  2. RISPERIDONE. [Concomitant]
     Active Substance: RISPERIDONE
     Indication: IMPULSE-CONTROL DISORDER
     Dosage: 1 MG, UNKNOWN
     Route: 048
     Dates: start: 20150529
  3. ATTENTIN [Concomitant]
     Indication: IMPULSE-CONTROL DISORDER
     Dosage: 0.25 MG, 1X/DAY:QD
     Route: 065
     Dates: start: 20151112
  4. ATTENTIN [Concomitant]
     Dosage: 0.25 MG, 2X/DAY:BID (0.5 MG 1/2-0-1/2)
     Route: 065
  5. RISPERIDONE. [Concomitant]
     Active Substance: RISPERIDONE
     Dosage: 0.5 MG, 2X/DAY:BID (1-0-1)
     Route: 065
     Dates: start: 2010
  6. ELVANSE [Suspect]
     Active Substance: LISDEXAMFETAMINE DIMESYLATE
     Indication: ATTENTION DEFICIT/HYPERACTIVITY DISORDER
     Dosage: 20 MG, UNKNOWN
     Route: 048
     Dates: start: 20151125, end: 20151126
  7. ELVANSE [Suspect]
     Active Substance: LISDEXAMFETAMINE DIMESYLATE
     Dosage: 30 MG, 1X/DAY:QD
     Route: 048
     Dates: start: 20151125, end: 20151126

REACTIONS (4)
  - Self-injurious ideation [Recovered/Resolved]
  - Agitation [Recovered/Resolved]
  - Violence-related symptom [Recovered/Resolved]
  - Wrong technique in product usage process [Recovered/Resolved]

NARRATIVE: CASE EVENT DATE: 20151125
